FAERS Safety Report 4504075-0 (Version None)
Quarter: 2004Q4

REPORT INFORMATION
  Report Type: 
  Country: None (occurrence: None)
  Receive Date: 20041118
  Receipt Date: 20041108
  Transmission Date: 20050328
  Serious: Yes (Other)
  Sender: FDA-Public Use
  Company Number: US-JNJFOC-20041102607

PATIENT
  Sex: Female

DRUGS (21)
  1. INFLIXIMAB [Suspect]
     Indication: RHEUMATOID ARTHRITIS
     Route: 042
  2. METHOTREXATE SODIUM [Concomitant]
  3. METHOTREXATE SODIUM [Concomitant]
  4. WELLBUTRIN [Concomitant]
  5. PROZAC [Concomitant]
  6. EFFEXOR [Concomitant]
  7. TRAZODONE HCL [Concomitant]
  8. LEUCOVORIN CALCIUM [Concomitant]
  9. PREDNISONE [Concomitant]
  10. VICODIN HP [Concomitant]
  11. VICODIN HP [Concomitant]
     Dosage: 10-660 TABLETS
  12. VITAMIN B COMPLEX CAP [Concomitant]
  13. VITAMIN B COMPLEX CAP [Concomitant]
  14. VITAMIN B COMPLEX CAP [Concomitant]
  15. VITAMIN B COMPLEX CAP [Concomitant]
  16. VITAMIN B COMPLEX CAP [Concomitant]
  17. MULTIPLE VITAMIN-MINERALS [Concomitant]
  18. MULTIPLE VITAMIN-MINERALS [Concomitant]
  19. CALCIUM [Concomitant]
  20. FOLIC ACID [Concomitant]
  21. FOLIC ACID [Concomitant]

REACTIONS (1)
  - PULMONARY COCCIDIOIDES [None]
